FAERS Safety Report 24537896 (Version 1)
Quarter: 2024Q4

REPORT INFORMATION
  Report Type: Spontaneous
  Country: FR (occurrence: FR)
  Receive Date: 20241023
  Receipt Date: 20241023
  Transmission Date: 20250114
  Serious: Yes (Other)
  Sender: SANDOZ
  Company Number: FR-NOVPHSZ-PHHY2019FR040891

PATIENT
  Sex: Male

DRUGS (2)
  1. CASPOFUNGIN [Suspect]
     Active Substance: CASPOFUNGIN
     Indication: Systemic candida
     Dosage: UNK UNK, QW (7 DAYS)
     Route: 065
  2. CALCIUM CHLORIDE\DEXTROSE MONOHYDRATE\LACTIC ACID\MAGNESIUM CHLORIDE\P [Suspect]
     Active Substance: CALCIUM CHLORIDE\DEXTROSE MONOHYDRATE\LACTIC ACID\MAGNESIUM CHLORIDE\POTASSIUM CHLORIDE\SODIUM BICAR
     Indication: Haemodialysis
     Dosage: UNK
     Route: 010

REACTIONS (4)
  - Pneumonia pneumococcal [Recovering/Resolving]
  - Systemic candida [Recovering/Resolving]
  - Pneumonia bacterial [Recovering/Resolving]
  - Septic shock [Recovering/Resolving]

NARRATIVE: CASE EVENT DATE: 20190109
